FAERS Safety Report 19577305 (Version 1)
Quarter: 2021Q3

REPORT INFORMATION
  Report Type: Spontaneous
  Country: US (occurrence: US)
  Receive Date: 20210719
  Receipt Date: 20210719
  Transmission Date: 20211014
  Serious: No
  Sender: FDA-Public Use
  Company Number: US-PFIZER INC-2021581962

PATIENT
  Age: 20 Year
  Sex: Female
  Weight: 40.82 kg

DRUGS (1)
  1. EUCRISA [Suspect]
     Active Substance: CRISABOROLE
     Indication: DERMATITIS ATOPIC
     Dosage: UNK, 1X/DAY (APPLIED NIGHTLY TO HER FACE, EYELIDS, AND NECK)
     Route: 061
     Dates: start: 20210519

REACTIONS (10)
  - Disturbance in attention [Recovering/Resolving]
  - Application site pain [Recovering/Resolving]
  - Incoherent [Recovering/Resolving]
  - Migraine [Recovering/Resolving]
  - Headache [Recovering/Resolving]
  - Gait disturbance [Recovering/Resolving]
  - Dizziness [Recovering/Resolving]
  - Nausea [Recovering/Resolving]
  - Fear of falling [Recovering/Resolving]
  - Speech disorder [Recovering/Resolving]

NARRATIVE: CASE EVENT DATE: 20210519
